FAERS Safety Report 23413418 (Version 1)
Quarter: 2024Q1

REPORT INFORMATION
  Report Type: Spontaneous
  Country: US (occurrence: US)
  Receive Date: 20240117
  Receipt Date: 20240117
  Transmission Date: 20240409
  Serious: No
  Sender: FDA-Public Use
  Company Number: US-NOVOPROD-1140201

PATIENT
  Sex: Female

DRUGS (2)
  1. OZEMPIC [Suspect]
     Active Substance: SEMAGLUTIDE
     Indication: Product used for unknown indication
     Dosage: UNK
     Route: 058
  2. HUMIRA [Suspect]
     Active Substance: ADALIMUMAB
     Indication: Crohn^s disease
     Dosage: UNK

REACTIONS (10)
  - Hypokinesia [Unknown]
  - Furuncle [Not Recovered/Not Resolved]
  - Stress [Recovered/Resolved]
  - Irritable bowel syndrome [Not Recovered/Not Resolved]
  - Memory impairment [Unknown]
  - Eating disorder [Unknown]
  - Adverse event [Recovered/Resolved]
  - Asthenia [Unknown]
  - Dizziness [Unknown]
  - Blood glucose increased [Recovered/Resolved]
